FAERS Safety Report 6112425-7 (Version None)
Quarter: 2009Q1

REPORT INFORMATION
  Report Type: 
  Country: None (occurrence: None)
  Receive Date: 20090312
  Receipt Date: 20090227
  Transmission Date: 20090719
  Serious: Yes (Hospitalization, Other)
  Sender: FDA-Public Use
  Company Number: PHHY2009GB06429

PATIENT
  Sex: Male

DRUGS (1)
  1. CLOZARIL [Suspect]
     Indication: SCHIZOPHRENIA
     Dosage: UNK
     Route: 048
     Dates: start: 20070418

REACTIONS (5)
  - ASTHENIA [None]
  - FALL [None]
  - HIP ARTHROPLASTY [None]
  - PLATELET COUNT DECREASED [None]
  - THROMBOCYTOPENIA [None]
